FAERS Safety Report 17305846 (Version 1)
Quarter: 2020Q1

REPORT INFORMATION
  Report Type: Spontaneous
  Country: US (occurrence: US)
  Receive Date: 20200123
  Receipt Date: 20200123
  Transmission Date: 20200409
  Serious: Yes (Death, Life-Threatening, Hospitalization, Other)
  Sender: FDA-Public Use
  Company Number: US-HIKMA PHARMACEUTICALS USA INC.-US-H14001-20-50448

PATIENT
  Age: 53 Year
  Sex: Female

DRUGS (1)
  1. MYCOPHENOLIC ACID. [Suspect]
     Active Substance: MYCOPHENOLIC ACID
     Indication: SYSTEMIC SCLERODERMA
     Route: 065

REACTIONS (8)
  - Clostridium difficile infection [Recovering/Resolving]
  - Gastrointestinal perforation [Fatal]
  - Colitis [Recovering/Resolving]
  - Cardiac arrest [Fatal]
  - Systemic candida [Fatal]
  - Hypotension [Unknown]
  - Hyponatraemia [Unknown]
  - Tachypnoea [Unknown]
